FAERS Safety Report 7132512-4 (Version None)
Quarter: 2010Q4

REPORT INFORMATION
  Report Type: 
  Country: None (occurrence: None)
  Receive Date: 20101202
  Receipt Date: 20101117
  Transmission Date: 20110411
  Serious: Yes (Hospitalization, Other)
  Sender: FDA-Public Use
  Company Number: GB-ROCHE-744442

PATIENT

DRUGS (7)
  1. DACLIZUMAB [Suspect]
     Route: 065
  2. MYCOPHENOLATE MOFETIL [Suspect]
     Route: 065
  3. TACROLIMUS [Suspect]
     Indication: LIVER TRANSPLANT
     Route: 065
  4. HYDROCORTISONE [Suspect]
     Indication: LIVER TRANSPLANT
     Route: 065
  5. PREDNISOLONE [Suspect]
     Indication: LIVER TRANSPLANT
     Route: 065
  6. METHYLPREDNISOLONE [Concomitant]
     Dosage: 3 DAY COURSE
  7. BASILIXIMAB [Concomitant]

REACTIONS (3)
  - DIARRHOEA [None]
  - LIVER FUNCTION TEST ABNORMAL [None]
  - VIRAL INFECTION [None]
